FAERS Safety Report 6406137-X (Version None)
Quarter: 2009Q4

REPORT INFORMATION
  Report Type: 
  Country: None (occurrence: None)
  Receive Date: 20091016
  Receipt Date: 20091016
  Transmission Date: 20100525
  Serious: No
  Sender: FDA-Public Use
  Company Number: None

PATIENT
  Age: 59 Year
  Sex: Female
  Weight: 71.2147 kg

DRUGS (1)
  1. ABILIFY [Suspect]
     Indication: TARDIVE DYSKINESIA
     Dosage: DAILY
     Dates: start: 20080210

REACTIONS (1)
  - TARDIVE DYSKINESIA [None]
